FAERS Safety Report 11914639 (Version 1)
Quarter: 2016Q1

REPORT INFORMATION
  Report Type: Spontaneous
  Country: US (occurrence: DE)
  Receive Date: 20160113
  Receipt Date: 20160113
  Transmission Date: 20160526
  Serious: Yes (Disabling)
  Sender: FDA-Public Use
  Company Number: DE-AKRON, INC.-1046466

PATIENT
  Sex: Female

DRUGS (4)
  1. TAFLOTAN (TALFLUPROST) [Concomitant]
  2. COSOPT [Suspect]
     Active Substance: DORZOLAMIDE HYDROCHLORIDE\TIMOLOL MALEATE
     Indication: GLAUCOMA
     Route: 047
     Dates: start: 2012
  3. CLONID-OPHTAL (CLONIDINE HYDROCHLORIDE) [Concomitant]
     Dates: start: 2012
  4. L-THYROXIN (LEVOTHYROXINE SODIUM) [Concomitant]

REACTIONS (6)
  - Deafness [Unknown]
  - Erythema [Unknown]
  - Alopecia [Unknown]
  - Angioedema [Unknown]
  - Tinnitus [Unknown]
  - Paraesthesia [Unknown]

NARRATIVE: CASE EVENT DATE: 201504
